FAERS Safety Report 24417255 (Version 2)
Quarter: 2024Q4

REPORT INFORMATION
  Report Type: Report from Study
  Country: US (occurrence: US)
  Receive Date: 20241009
  Receipt Date: 20241015
  Transmission Date: 20250115
  Serious: Yes (Hospitalization)
  Sender: ROCHE
  Company Number: US-ROCHE-10000097894

PATIENT
  Age: 70 Year
  Sex: Female

DRUGS (16)
  1. OCRELIZUMAB [Suspect]
     Active Substance: OCRELIZUMAB
     Indication: Multiple sclerosis
     Dosage: 1ST DOSE OF 600 MGS EVERY 6 MONTHS SO HAD TO BE SPLIT BETWEEN 2 DOSES.?SUBSEQUENT DOSE WAS TAKEN ON
     Route: 065
     Dates: start: 20201223, end: 20211223
  2. OCRELIZUMAB [Suspect]
     Active Substance: OCRELIZUMAB
     Dosage: 07/JUL/2021, 15/AUG/2022, 31/JUL/2023, 24/JAN/2024,
     Route: 065
     Dates: start: 20220210, end: 20220210
  3. TYSABRI [Concomitant]
     Active Substance: NATALIZUMAB
     Dates: start: 20100831, end: 20130322
  4. GILENYA [Concomitant]
     Active Substance: FINGOLIMOD HYDROCHLORIDE
     Dates: start: 20130325, end: 20130531
  5. LEVOTHYROXINE SODIUM [Concomitant]
     Active Substance: LEVOTHYROXINE SODIUM
     Dates: start: 20150609, end: 20201120
  6. ASPIRIN [Concomitant]
     Active Substance: ASPIRIN
     Dates: start: 2007
  7. BUMEX [Concomitant]
     Active Substance: BUMETANIDE
     Dates: start: 2013
  8. LISINOPRIL HELVEPHARM [Concomitant]
     Dates: start: 2006
  9. LUNESTA [Concomitant]
     Active Substance: ESZOPICLONE
     Dates: start: 2018
  10. CALCIUM FOLINATE, LEUCOVORIN Soln for injec 10 mg / 1 ml [Concomitant]
     Dates: start: 2015
  11. METFORMIN HYDROCHLORIDE [Concomitant]
     Active Substance: METFORMIN HYDROCHLORIDE
     Dates: start: 2008, end: 2024
  12. CRESTOR [Concomitant]
     Active Substance: ROSUVASTATIN CALCIUM
     Dates: start: 2010
  13. DOXYCYCLINE [Concomitant]
     Active Substance: DOXYCYCLINE
     Dates: start: 20211225, end: 20211231
  14. VANCOMYCIN [Concomitant]
     Active Substance: VANCOMYCIN
     Dates: start: 20211223, end: 20211224
  15. ZOLOFT [Concomitant]
     Active Substance: SERTRALINE HYDROCHLORIDE
     Dates: start: 20241001
  16. REMDESIVIR [Concomitant]
     Active Substance: REMDESIVIR
     Dates: start: 20240822, end: 20240824

REACTIONS (1)
  - COVID-19 [Recovered/Resolved]

NARRATIVE: CASE EVENT DATE: 20240822
